FAERS Safety Report 18608355 (Version 2)
Quarter: 2021Q1

REPORT INFORMATION
  Report Type: Report from Study
  Country: PK (occurrence: PK)
  Receive Date: 20201212
  Receipt Date: 20210121
  Transmission Date: 20210419
  Serious: Yes (Life-Threatening, Other)
  Sender: FDA-Public Use
  Company Number: NVSC2020PK094068

PATIENT
  Age: 31 Year
  Sex: Female

DRUGS (1)
  1. COSENTYX [Suspect]
     Active Substance: SECUKINUMAB
     Indication: PSORIASIS
     Dosage: 150 MG, QD
     Route: 058
     Dates: start: 20190518, end: 20200214

REACTIONS (7)
  - Delivery [Unknown]
  - Amniotic fluid volume decreased [Unknown]
  - Eclampsia [Unknown]
  - Normal newborn [Unknown]
  - Inappropriate schedule of product administration [Recovered/Resolved]
  - Hypertension [Unknown]
  - Maternal exposure during pregnancy [Unknown]

NARRATIVE: CASE EVENT DATE: 20190518
